FAERS Safety Report 8069193-1 (Version None)
Quarter: 2012Q1

REPORT INFORMATION
  Report Type: 
  Country: None (occurrence: None)
  Receive Date: 20120118
  Receipt Date: 20120109
  Transmission Date: 20120608
  Serious: Yes (Death)
  Sender: FDA-Public Use
  Company Number: JPI-P-014832

PATIENT
  Age: 51 Year
  Sex: Female

DRUGS (1)
  1. XYREM [Suspect]
     Indication: RESTLESS LEGS SYNDROME
     Dosage: 6 GM (3 GM, 2 IN 1 D), ORAL
     Route: 048
     Dates: start: 20060921, end: 20060927

REACTIONS (4)
  - ROAD TRAFFIC ACCIDENT [None]
  - CHEST INJURY [None]
  - PELVIC ORGAN INJURY [None]
  - INTERNAL INJURY [None]
